FAERS Safety Report 10036317 (Version 1)
Quarter: 2014Q1

REPORT INFORMATION
  Report Type: Spontaneous
  Country: US (occurrence: None)
  Receive Date: 20140306
  Receipt Date: 20140306
  Transmission Date: 20141002
  Serious: Yes (Hospitalization, Other)
  Sender: FDA-Public Use
  Company Number: 163-21880-11120625

PATIENT
  Age: 72 Year
  Sex: Female

DRUGS (9)
  1. REVLIMID (LENALIDOMIDE) (10 MILLIGRAM, CAPSULES) [Suspect]
     Indication: PLASMA CELL MYELOMA
     Dosage: 21 IN 21 D
     Route: 048
     Dates: start: 20111118, end: 201205
  2. LISINOPRIL (LISINOPRIL) [Concomitant]
  3. SIMVASTATIN (SIMVASTATIN) [Concomitant]
  4. AMLODIPINE BESYLATE (AMLODIPINE BESILATE) [Concomitant]
  5. ATENOLOL (ATENOLOL) [Concomitant]
  6. ANASTROZOLE (ANASTROZOLE) [Concomitant]
  7. ASPIRIN (ACETYLSALICYLIC ACID) [Concomitant]
  8. VITAMIN D-3 (COLECALCIFEROL) [Concomitant]
  9. DEXAMETHASONE (DEXAMETHASONE) [Concomitant]

REACTIONS (11)
  - Syncope [None]
  - Anaemia [None]
  - Muscle atrophy [None]
  - Hypophagia [None]
  - Ageusia [None]
  - Rash [None]
  - Pruritus [None]
  - Bone pain [None]
  - Weight decreased [None]
  - Hypertension [None]
  - Fatigue [None]
